FAERS Safety Report 8885183 (Version 1)
Quarter: 2012Q4

REPORT INFORMATION
  Report Type: 
  Country: US (occurrence: US)
  Receive Date: 20121102
  Receipt Date: 20121102
  Transmission Date: 20130627
  Serious: Yes (Other)
  Sender: FDA-Public Use
  Company Number: US-PFIZER INC-2012272158

PATIENT
  Age: 71 Year
  Sex: Female
  Weight: 77.55 kg

DRUGS (1)
  1. LYRICA [Suspect]
     Indication: SHINGLES
     Dosage: UNK
     Dates: start: 20120710, end: 20120717

REACTIONS (1)
  - Weight increased [Unknown]
